FAERS Safety Report 9735237 (Version 1)
Quarter: 2013Q4

REPORT INFORMATION
  Report Type: Spontaneous
  Country: US (occurrence: None)
  Receive Date: 20131205
  Receipt Date: 20131205
  Transmission Date: 20140711
  Serious: Yes (Life-Threatening, Hospitalization)
  Sender: FDA-Public Use
  Company Number: None

PATIENT
  Age: 61 Year
  Sex: Female
  Weight: 69.85 kg

DRUGS (1)
  1. BYETTA 10 MCG LILLY [Suspect]
     Indication: BLOOD GLUCOSE INCREASED
     Dosage: GIVEN INTO/UNDER THE SKIN
     Dates: start: 20130708, end: 20130709

REACTIONS (9)
  - Nausea [None]
  - Vomiting [None]
  - Metabolic acidosis [None]
  - Dehydration [None]
  - Arrhythmia [None]
  - Atrial fibrillation [None]
  - Supraventricular tachycardia [None]
  - Post-traumatic stress disorder [None]
  - Dyspnoea [None]
